FAERS Safety Report 8955268 (Version 1)
Quarter: 2012Q4

REPORT INFORMATION
  Report Type: 
  Country: US (occurrence: US)
  Receive Date: 20121207
  Receipt Date: 20121207
  Transmission Date: 20130627
  Serious: No
  Sender: FDA-Public Use
  Company Number: US-009507513-1212USA001405

PATIENT
  Sex: Male

DRUGS (2)
  1. SAPHRIS [Suspect]
     Dosage: 1 DF, hs, 10 mg tablet
     Dates: start: 20121126, end: 2012
  2. SAPHRIS [Suspect]
     Dosage: 2 DF, hs, 5 mg tablet
     Dates: start: 2012

REACTIONS (1)
  - Somnolence [Unknown]
